FAERS Safety Report 6162721-2 (Version None)
Quarter: 2009Q2

REPORT INFORMATION
  Report Type: 
  Country: None (occurrence: None)
  Receive Date: 20090421
  Receipt Date: 20080317
  Transmission Date: 20091009
  Serious: No
  Sender: FDA-Public Use
  Company Number: US-ASTRAZENECA-2008UW05317

PATIENT
  Age: 57 Year
  Sex: Female
  Weight: 86.2 kg

DRUGS (4)
  1. METOPROLOL SUCCINATE [Suspect]
     Indication: HYPERTENSION
     Route: 048
     Dates: start: 20070101
  2. METOPROLOL SUCCINATE [Suspect]
     Indication: ARRHYTHMIA
     Route: 048
     Dates: start: 20070101
  3. ASPIRIN [Concomitant]
  4. FLONASE [Concomitant]

REACTIONS (3)
  - EXTRASYSTOLES [None]
  - FAMILIAL TREMOR [None]
  - PALPITATIONS [None]
